FAERS Safety Report 5008950-2 (Version None)
Quarter: 2006Q2

REPORT INFORMATION
  Report Type: 
  Country: None (occurrence: None)
  Receive Date: 20060404
  Receipt Date: 20051108
  Transmission Date: 20061013
  Serious: No
  Sender: FDA-Public Use
  Company Number: US200511000285

PATIENT
  Age: 36 Year
  Sex: Male

DRUGS (2)
  1. CYMBALTA [Suspect]
     Indication: ANXIETY
     Dosage: 60 MG, DAILY (1/D), ORAL
     Route: 048
     Dates: start: 20050601
  2. ATIVAN [Concomitant]

REACTIONS (1)
  - SEMEN VOLUME DECREASED [None]
